FAERS Safety Report 17941963 (Version 1)
Quarter: 2020Q2

REPORT INFORMATION
  Report Type: Spontaneous
  Country: US (occurrence: US)
  Receive Date: 20200625
  Receipt Date: 20200625
  Transmission Date: 20200714
  Serious: No
  Sender: FDA-Public Use
  Company Number: US-SA-2020SA159913

PATIENT

DRUGS (1)
  1. LOVENOX [Suspect]
     Active Substance: ENOXAPARIN SODIUM
     Indication: COAGULOPATHY
     Dosage: 65 MG, BID
     Route: 065

REACTIONS (4)
  - Device difficult to use [Unknown]
  - Incorrect dose administered by device [Unknown]
  - Syringe issue [Unknown]
  - Product quality issue [Unknown]
